FAERS Safety Report 18290819 (Version 1)
Quarter: 2020Q3

REPORT INFORMATION
  Report Type: Spontaneous
  Country: KR (occurrence: KR)
  Receive Date: 20200922
  Receipt Date: 20200922
  Transmission Date: 20201103
  Serious: Yes (Other)
  Sender: FDA-Public Use
  Company Number: KR-ADVANZ PHARMA-202009008692

PATIENT

DRUGS (1)
  1. ALFUZOSIN [Suspect]
     Active Substance: ALFUZOSIN
     Dosage: 3?4 TIMES PER WEEK, TABLET
     Route: 048
     Dates: start: 2016

REACTIONS (5)
  - Intestinal metaplasia [Unknown]
  - Gastrointestinal wall thinning [Unknown]
  - Flatulence [Unknown]
  - Chronic gastritis [Unknown]
  - Dyspepsia [Unknown]
